FAERS Safety Report 6233856-0 (Version None)
Quarter: 2009Q2

REPORT INFORMATION
  Report Type: 
  Country: None (occurrence: None)
  Receive Date: 20090618
  Receipt Date: 20090609
  Transmission Date: 20091009
  Serious: Yes (Hospitalization)
  Sender: FDA-Public Use
  Company Number: CA-JNJFOC-20090404464

PATIENT
  Sex: Female
  Weight: 67.3 kg

DRUGS (4)
  1. REMICADE [Suspect]
     Dosage: INFUSIONS: ^6 TOTAL AT THIS CLINIC^
     Route: 042
  2. REMICADE [Suspect]
     Indication: COLITIS ULCERATIVE
     Dosage: INFUSIONS FOR } 2 YEARS
     Route: 042
  3. BENADRYL [Concomitant]
     Indication: PREMEDICATION
     Route: 048
  4. SOLU-CORTEF [Concomitant]
     Indication: PREMEDICATION
     Route: 042

REACTIONS (4)
  - ABDOMINAL PAIN [None]
  - BILIARY TRACT DISORDER [None]
  - CONSTIPATION [None]
  - VOMITING [None]
